FAERS Safety Report 6425543-0 (Version None)
Quarter: 2009Q4

REPORT INFORMATION
  Report Type: 
  Country: None (occurrence: None)
  Receive Date: 20091103
  Receipt Date: 20091023
  Transmission Date: 20100525
  Serious: Yes (Other)
  Sender: FDA-Public Use
  Company Number: US-JNJFOC-20091007929

PATIENT
  Age: 6 Year
  Sex: Male
  Weight: 19.05 kg

DRUGS (4)
  1. TYLENOL [Suspect]
     Route: 048
     Dates: start: 20091014, end: 20091022
  2. TYLENOL [Suspect]
     Indication: PYREXIA
     Route: 048
     Dates: start: 20091014, end: 20091022
  3. CHILDREN'S MOTRIN [Concomitant]
     Indication: PYREXIA
  4. OSELTAMIVIR [Concomitant]
     Indication: INFLUENZA

REACTIONS (3)
  - COUGH [None]
  - TRANSMISSION OF AN INFECTIOUS AGENT VIA A MEDICINAL PRODUCT [None]
  - VOMITING [None]
